FAERS Safety Report 7428911-3 (Version None)
Quarter: 2011Q2

REPORT INFORMATION
  Report Type: 
  Country: None (occurrence: None)
  Receive Date: 20110415
  Receipt Date: 20110415
  Transmission Date: 20111010
  Serious: Yes (Other)
  Sender: FDA-Public Use
  Company Number: None

PATIENT
  Sex: Female
  Weight: 74.8435 kg

DRUGS (1)
  1. CYMBALTA [Suspect]
     Indication: DEPRESSION
     Dosage: TAPERED FROM 90MG-60-30 DAILY PO
     Route: 048
     Dates: start: 20101110, end: 20110409

REACTIONS (7)
  - ELECTRIC SHOCK [None]
  - DIZZINESS [None]
  - NAUSEA [None]
  - IMPAIRED WORK ABILITY [None]
  - DIARRHOEA [None]
  - WITHDRAWAL SYNDROME [None]
  - PARAESTHESIA [None]
